FAERS Safety Report 6703981-6 (Version None)
Quarter: 2010Q2

REPORT INFORMATION
  Report Type: 
  Country: None (occurrence: None)
  Receive Date: 20100430
  Receipt Date: 20100415
  Transmission Date: 20101027
  Serious: Yes (Other)
  Sender: FDA-Public Use
  Company Number: US-ROCHE-700094

PATIENT
  Sex: Female

DRUGS (2)
  1. PEGASYS [Suspect]
     Indication: HEPATITIS C
     Dosage: FPRM: PFS
     Route: 058
     Dates: start: 20100328
  2. RIBAVIRIN [Suspect]
     Indication: HEPATITIS C
     Dosage: DIVIDED DOSES; FORM: PILLS
     Route: 048
     Dates: start: 20100328

REACTIONS (4)
  - BLOOD BILIRUBIN ABNORMAL [None]
  - FALL [None]
  - FOOT FRACTURE [None]
  - RED BLOOD CELL COUNT DECREASED [None]
